FAERS Safety Report 4722198-8 (Version None)
Quarter: 2005Q3

REPORT INFORMATION
  Report Type: 
  Country: None (occurrence: None)
  Receive Date: 20050722
  Receipt Date: 20040901
  Transmission Date: 20060218
  Serious: No
  Sender: FDA-Public Use
  Company Number: US-GLAXOSMITHKLINE-A0524247A

PATIENT
  Age: 72 Year
  Sex: Female

DRUGS (7)
  1. AVANDIA [Suspect]
     Dosage: 4MG PER DAY
     Route: 048
     Dates: start: 20040809, end: 20040817
  2. LASIX [Concomitant]
  3. INDERAL [Concomitant]
  4. ALDACTONE [Concomitant]
  5. LEXAPRO [Concomitant]
  6. FOLIC ACID [Concomitant]
  7. GLUCOTROL [Concomitant]

REACTIONS (1)
  - NAUSEA [None]
